FAERS Safety Report 9555611 (Version 2)
Quarter: 2013Q4

REPORT INFORMATION
  Report Type: Spontaneous
  Country: BR (occurrence: BR)
  Receive Date: 20130926
  Receipt Date: 20131129
  Transmission Date: 20140711
  Serious: Yes (Other)
  Sender: FDA-Public Use
  Company Number: PHHY2013BR105637

PATIENT
  Sex: Male

DRUGS (1)
  1. DESFERAL [Suspect]
     Indication: SERUM FERRITIN INCREASED
     Dosage: UNK UKN, UNK

REACTIONS (3)
  - Condition aggravated [Unknown]
  - Liver disorder [Unknown]
  - Blood iron increased [Unknown]
